FAERS Safety Report 6885938-8 (Version None)
Quarter: 2010Q3

REPORT INFORMATION
  Report Type: 
  Country: None (occurrence: None)
  Receive Date: 20100729
  Receipt Date: 20080610
  Transmission Date: 20110219
  Serious: No
  Sender: FDA-Public Use
  Company Number: US-PFIZER INC-2008049470

PATIENT

DRUGS (2)
  1. CELEBREX [Suspect]
  2. WARFARIN SODIUM [Interacting]

REACTIONS (2)
  - DRUG INTERACTION [None]
  - LABELLED DRUG-DRUG INTERACTION MEDICATION ERROR [None]
